FAERS Safety Report 16041441 (Version 1)
Quarter: 2019Q1

REPORT INFORMATION
  Report Type: Spontaneous
  Country: US (occurrence: US)
  Receive Date: 20190306
  Receipt Date: 20190306
  Transmission Date: 20190418
  Serious: No
  Sender: FDA-Public Use
  Company Number: US-AKORN PHARMACEUTICALS-2019AKN00060

PATIENT
  Sex: Female

DRUGS (2)
  1. MYORISAN [Suspect]
     Active Substance: ISOTRETINOIN
     Dosage: UNK
     Dates: start: 20171103, end: 20180516
  2. CLARAVIS [Suspect]
     Active Substance: ISOTRETINOIN
     Dosage: UNK
     Dates: start: 20171103, end: 20180316

REACTIONS (1)
  - Malaise [Unknown]
